FAERS Safety Report 15947020 (Version 1)
Quarter: 2019Q1

REPORT INFORMATION
  Report Type: Report from Study
  Country: KR (occurrence: KR)
  Receive Date: 20190211
  Receipt Date: 20190211
  Transmission Date: 20190417
  Serious: Yes (Hospitalization)
  Sender: FDA-Public Use
  Company Number: KR-MYLANLABS-2019M1012030

PATIENT
  Age: 44 Year
  Sex: Male

DRUGS (1)
  1. EPROSARTAN [Suspect]
     Active Substance: EPROSARTAN
     Indication: HYPERTENSION
     Route: 065

REACTIONS (1)
  - Angioedema [Recovering/Resolving]
